FAERS Safety Report 9366320 (Version 2)
Quarter: 2013Q3

REPORT INFORMATION
  Report Type: Spontaneous
  Country: JP (occurrence: JP)
  Receive Date: 20130625
  Receipt Date: 20130830
  Transmission Date: 20140515
  Serious: Yes (Life-Threatening, Hospitalization)
  Sender: FDA-Public Use
  Company Number: JP-ASTRAZENECA-2013SE47045

PATIENT
  Age: 54 Year
  Sex: Female
  Weight: 66 kg

DRUGS (3)
  1. ANAPEINE [Suspect]
     Indication: EPIDURAL ANAESTHESIA
     Route: 008
     Dates: start: 20130613
  2. BOSMIN [Concomitant]
     Dosage: DOSE UNKNOWN
     Route: 065
     Dates: start: 20130613
  3. DIPRIVAN KIT [Concomitant]
     Indication: SEDATION
     Dosage: 2.5 - 3 MCG/ML
     Route: 042
     Dates: start: 20130613

REACTIONS (2)
  - Toxicity to various agents [Unknown]
  - Cardiac arrest [Recovered/Resolved]
